FAERS Safety Report 15951854 (Version 2)
Quarter: 2019Q4

REPORT INFORMATION
  Report Type: Spontaneous
  Country: PL (occurrence: PL)
  Receive Date: 20190211
  Receipt Date: 20191104
  Transmission Date: 20200122
  Serious: Yes (Death, Hospitalization, Other)
  Sender: FDA-Public Use
  Company Number: PL-GLAXOSMITHKLINE-PL2019021454

PATIENT
  Age: 58 Year
  Sex: Female

DRUGS (42)
  1. NYSTATIN. [Suspect]
     Active Substance: NYSTATIN
     Indication: ACINETOBACTER INFECTION
     Dosage: UNK
     Route: 065
  2. BUDESONIDE. [Suspect]
     Active Substance: BUDESONIDE
     Indication: POLYP
     Dosage: UNK
     Route: 065
  3. MYCOPHENOLATE MOFETIL. [Suspect]
     Active Substance: MYCOPHENOLATE MOFETIL
     Indication: LUNG TRANSPLANT
     Dosage: 1000 MG, BID
     Route: 065
  4. AMPICILLIN AND SULBACTAM [Suspect]
     Active Substance: AMPICILLIN SODIUM\SULBACTAM SODIUM
     Indication: BACTERIAL INFECTION
     Dosage: UNK
     Route: 016
  5. IMIPENEM [Suspect]
     Active Substance: IMIPENEM
     Indication: BACTERIAL INFECTION
     Dosage: UNK
     Route: 065
  6. PANTOPRAZOLE [Suspect]
     Active Substance: PANTOPRAZOLE
     Indication: PRODUCT USED FOR UNKNOWN INDICATION
     Dosage: UNK
     Route: 065
  7. COLISTIN [Suspect]
     Active Substance: COLISTIN
     Indication: PRODUCT USED FOR UNKNOWN INDICATION
     Dosage: UNK
     Route: 065
  8. CYCLOSPORINE. [Suspect]
     Active Substance: CYCLOSPORINE
     Indication: IMMUNOSUPPRESSION
     Dosage: UNK
     Route: 065
  9. CLINDAMYCIN. [Suspect]
     Active Substance: CLINDAMYCIN
     Indication: POLYP
     Dosage: UNK
     Route: 065
  10. CLINDAMYCIN. [Suspect]
     Active Substance: CLINDAMYCIN
     Indication: OTITIS MEDIA
  11. METHYLPREDNISOLONE. [Suspect]
     Active Substance: METHYLPREDNISOLONE
     Indication: LUNG TRANSPLANT
     Dosage: UNK
     Route: 065
  12. PREDNISONE. [Suspect]
     Active Substance: PREDNISONE
     Indication: IMMUNOSUPPRESSANT DRUG THERAPY
  13. CEFTAZIDIME. [Concomitant]
     Active Substance: CEFTAZIDIME
     Indication: ESCHERICHIA SEPSIS
     Dosage: UNK
     Route: 065
  14. AMPHOTERICIN B. [Suspect]
     Active Substance: AMPHOTERICIN B
     Indication: BACTERIAL INFECTION
     Dosage: UNK
     Route: 065
  15. MYCOPHENOLATE MOFETIL. [Suspect]
     Active Substance: MYCOPHENOLATE MOFETIL
     Indication: IMMUNOSUPPRESSANT DRUG THERAPY
  16. METHYLPREDNISOLONE. [Suspect]
     Active Substance: METHYLPREDNISOLONE
     Indication: LUNG TRANSPLANT REJECTION
  17. RITUXIMAB. [Concomitant]
     Active Substance: RITUXIMAB
     Indication: LUNG TRANSPLANT
     Dosage: UNK
     Route: 065
  18. CICLOSPORIN [Suspect]
     Active Substance: CYCLOSPORINE
     Indication: IMMUNOSUPPRESSANT DRUG THERAPY
     Dosage: 50 MG,BID
     Route: 065
  19. METRONIDAZOLE. [Suspect]
     Active Substance: METRONIDAZOLE
     Indication: INFECTION
     Dosage: UNK
     Route: 065
  20. GLIMEPIRIDE. [Suspect]
     Active Substance: GLIMEPIRIDE
     Indication: DIABETES MELLITUS
     Dosage: UNK
     Route: 065
  21. PREDNISONE. [Suspect]
     Active Substance: PREDNISONE
     Indication: LUNG TRANSPLANT
     Dosage: 10 MG, QD
     Route: 065
  22. TAZOBACTAM [Suspect]
     Active Substance: TAZOBACTAM
     Indication: INFECTION
     Dosage: UNK
     Route: 065
  23. AMOXICILLIN + CLAVULANIC ACID [Suspect]
     Active Substance: AMOXICILLIN\CLAVULANIC ACID
     Indication: URINARY TRACT INFECTION
  24. CEFTAZIDIME. [Suspect]
     Active Substance: CEFTAZIDIME
     Indication: OTITIS MEDIA
  25. BUDESONIDE. [Suspect]
     Active Substance: BUDESONIDE
     Indication: OTITIS MEDIA
  26. TACROLIMUS. [Suspect]
     Active Substance: TACROLIMUS
     Indication: LUNG TRANSPLANT
     Dosage: 0.5 MG, QD
     Route: 065
  27. CEFUROXIME. [Suspect]
     Active Substance: CEFUROXIME
     Indication: BACTERIAL INFECTION
     Dosage: UNK
     Route: 065
  28. GANCICLOVIR. [Suspect]
     Active Substance: GANCICLOVIR
     Indication: CYTOMEGALOVIRUS INFECTION
     Dosage: UNK
     Route: 065
  29. ALBUMIN [Concomitant]
     Active Substance: ALBUMIN HUMAN
     Indication: PRODUCT USED FOR UNKNOWN INDICATION
     Dosage: 100 ML, UNK
     Route: 065
  30. CEFTAZIDIME. [Suspect]
     Active Substance: CEFTAZIDIME
     Indication: BACTERIAL INFECTION
     Dosage: UNK
     Route: 065
  31. CICLOSPORIN [Suspect]
     Active Substance: CYCLOSPORINE
     Indication: LUNG TRANSPLANT
  32. PREDNISONE. [Suspect]
     Active Substance: PREDNISONE
     Indication: IMMUNOSUPPRESSION
  33. MIANSERIN [Suspect]
     Active Substance: MIANSERIN
     Indication: DEPRESSION
     Dosage: UNK
     Route: 065
  34. AMOXICILLIN + CLAVULANIC ACID [Suspect]
     Active Substance: AMOXICILLIN\CLAVULANIC ACID
     Indication: MORAXELLA INFECTION
     Dosage: UNK
     Route: 065
  35. AMOXICILLIN + CLAVULANIC ACID [Suspect]
     Active Substance: AMOXICILLIN\CLAVULANIC ACID
     Indication: BRONCHITIS
  36. CICLOSPORIN [Suspect]
     Active Substance: CYCLOSPORINE
     Indication: IMMUNOSUPPRESSION
  37. TACROLIMUS. [Suspect]
     Active Substance: TACROLIMUS
     Indication: IMMUNOSUPPRESSANT DRUG THERAPY
  38. AMIKACIN SULFATE. [Suspect]
     Active Substance: AMIKACIN SULFATE
     Indication: BACTERIAL INFECTION
     Dosage: UNK
     Route: 065
  39. OPIPRAMOL [Suspect]
     Active Substance: OPIPRAMOL
     Indication: ANXIETY DISORDER
     Dosage: UNK
     Route: 065
  40. VENLAFAXINE [Concomitant]
     Active Substance: VENLAFAXINE HYDROCHLORIDE
     Indication: ANXIETY DISORDER
     Dosage: UNK
     Route: 065
  41. ITRACONAZOLE. [Suspect]
     Active Substance: ITRACONAZOLE
     Indication: BACTERIAL INFECTION
     Dosage: UNK
     Route: 065
  42. VALGANCICLOVIR. [Suspect]
     Active Substance: VALGANCICLOVIR
     Indication: CYTOMEGALOVIRUS INFECTION
     Dosage: UNK
     Route: 065

REACTIONS (26)
  - Escherichia sepsis [Fatal]
  - Hypoproteinaemia [Unknown]
  - Bacterial infection [Fatal]
  - Cytomegalovirus infection [Not Recovered/Not Resolved]
  - Renal failure [Not Recovered/Not Resolved]
  - Depressive symptom [Unknown]
  - Sepsis [Fatal]
  - Hypogammaglobulinaemia [Unknown]
  - Bronchitis [Unknown]
  - Lung transplant rejection [Unknown]
  - Acinetobacter infection [Unknown]
  - Leukopenia [Fatal]
  - Electrolyte imbalance [Unknown]
  - Escherichia urinary tract infection [Unknown]
  - Aspergillus infection [Unknown]
  - Polyp [Unknown]
  - Pseudomonas infection [Recovered/Resolved]
  - Proteus infection [Unknown]
  - Otitis media [Unknown]
  - Candida infection [Unknown]
  - Pulmonary embolism [Unknown]
  - Klebsiella infection [Unknown]
  - Diabetes mellitus [Fatal]
  - Anxiety disorder [Unknown]
  - Transplant rejection [Fatal]
  - Moraxella infection [Unknown]
